FAERS Safety Report 8212837-1 (Version None)
Quarter: 2012Q1

REPORT INFORMATION
  Report Type: 
  Country: None (occurrence: None)
  Receive Date: 20120315
  Receipt Date: 20120307
  Transmission Date: 20120608
  Serious: Yes (Death, Hospitalization, Other)
  Sender: FDA-Public Use
  Company Number: PA-ABBOTT-12P-125-0911397-00

PATIENT
  Age: 57 Year
  Sex: Male

DRUGS (6)
  1. FUROSEMIDE [Concomitant]
     Indication: CARDIAC VALVE DISEASE
  2. IRBESARTAN [Concomitant]
     Indication: HYPERTENSION
  3. SPIRONOLACTONE [Concomitant]
     Indication: CARDIAC VALVE DISEASE
  4. FUROSEMIDE [Concomitant]
     Indication: HYPERTENSION
  5. HUMIRA [Suspect]
     Indication: RHEUMATOID ARTHRITIS
     Route: 058
     Dates: start: 20080910
  6. SPIRONOLACTONE [Concomitant]
     Indication: HYPERTENSION

REACTIONS (5)
  - CONGESTIVE CARDIOMYOPATHY [None]
  - INFLUENZA [None]
  - POST PROCEDURAL COMPLICATION [None]
  - CARDIAC FAILURE [None]
  - PNEUMONIA [None]
